FAERS Safety Report 10389726 (Version 1)
Quarter: 2014Q3

REPORT INFORMATION
  Report Type: Spontaneous
  Country: US (occurrence: None)
  Receive Date: 20140813
  Receipt Date: 20140813
  Transmission Date: 20150326
  Serious: Yes (Other)
  Sender: FDA-Public Use
  Company Number: 2014SA106323

PATIENT
  Age: 16 Year
  Sex: Female

DRUGS (1)
  1. MENTHOL [Suspect]
     Active Substance: MENTHOL
     Indication: MYALGIA
     Dates: start: 20140802

REACTIONS (4)
  - Burns first degree [None]
  - Application site burn [None]
  - Product quality issue [None]
  - Chemical injury [None]

NARRATIVE: CASE EVENT DATE: 20140802
